FAERS Safety Report 14700120 (Version 2)
Quarter: 2018Q2

REPORT INFORMATION
  Report Type: Report from Study
  Country: CA (occurrence: CA)
  Receive Date: 20180330
  Receipt Date: 20180412
  Transmission Date: 20180711
  Serious: Yes (Other)
  Sender: FDA-Public Use
  Company Number: CA-AMGEN-CANSL2018040826

PATIENT
  Age: 60 Year
  Sex: Female
  Weight: 58.5 kg

DRUGS (4)
  1. VITAMIN D [Concomitant]
     Active Substance: CHOLECALCIFEROL
     Dosage: UNK
  2. PROLIA [Suspect]
     Active Substance: DENOSUMAB
     Indication: OSTEOPENIA
     Dosage: 60 MG/ML, Q6MO
     Route: 058
     Dates: start: 20160216
  3. PROLIA [Suspect]
     Active Substance: DENOSUMAB
     Indication: OSTEOPOROSIS
  4. CALCIUM [Concomitant]
     Active Substance: CALCIUM
     Dosage: UNK

REACTIONS (9)
  - Adverse reaction [Not Recovered/Not Resolved]
  - Tension [Unknown]
  - Nodule [Unknown]
  - Off label use [Unknown]
  - Pain in extremity [Unknown]
  - Joint stiffness [Recovered/Resolved]
  - Exercise tolerance decreased [Unknown]
  - Peripheral swelling [Unknown]
  - Palpitations [Not Recovered/Not Resolved]
